FAERS Safety Report 6725729-1 (Version None)
Quarter: 2010Q2

REPORT INFORMATION
  Report Type: 
  Country: None (occurrence: None)
  Receive Date: 20100513
  Receipt Date: 20100513
  Transmission Date: 20101027
  Serious: Yes (Hospitalization)
  Sender: FDA-Public Use
  Company Number: None

PATIENT
  Age: 41 Year
  Sex: Female
  Weight: 47.6277 kg

DRUGS (1)
  1. ISOCAINE HYDROCHLORIDE [Suspect]
     Indication: ANAESTHESIA
     Dosage: 3.4 ML X1 DENTAL
     Route: 004
     Dates: start: 20100505, end: 20100505

REACTIONS (1)
  - LOSS OF CONSCIOUSNESS [None]
